FAERS Safety Report 8554398-3 (Version None)
Quarter: 2012Q3

REPORT INFORMATION
  Report Type: 
  Country: None (occurrence: None)
  Receive Date: 20120731
  Receipt Date: 20120723
  Transmission Date: 20120928
  Serious: Yes (Other)
  Sender: FDA-Public Use
  Company Number: US-009507513-1207USA009868

PATIENT

DRUGS (3)
  1. ZOCOR [Suspect]
     Dosage: 80 MG, UNK
     Route: 048
  2. COLCHICINE [Concomitant]
     Route: 048
  3. DILTIAZEM HCL [Concomitant]
     Dosage: 300 MG, UNK
     Route: 048

REACTIONS (3)
  - ASTHENIA [None]
  - RENAL FAILURE CHRONIC [None]
  - GAIT DISTURBANCE [None]
